FAERS Safety Report 17475550 (Version 1)
Quarter: 2020Q1

REPORT INFORMATION
  Report Type: Report from Study
  Country: CA (occurrence: CA)
  Receive Date: 20200228
  Receipt Date: 20200228
  Transmission Date: 20200409
  Serious: Yes (Other)
  Sender: FDA-Public Use
  Company Number: CA-JNJFOC-20190813195

PATIENT
  Age: 72 Year
  Sex: Female
  Weight: 69.8 kg

DRUGS (1)
  1. STELARA [Suspect]
     Active Substance: USTEKINUMAB
     Indication: CROHN^S DISEASE
     Dosage: STRENGTH = 90 MG
     Route: 058

REACTIONS (10)
  - Gait disturbance [Unknown]
  - Hypotension [Unknown]
  - Decreased appetite [Unknown]
  - Fatigue [Unknown]
  - Anxiety [Unknown]
  - Abdominal pain [Unknown]
  - Restlessness [Unknown]
  - Dizziness [Unknown]
  - Pallor [Unknown]
  - Diarrhoea [Unknown]

NARRATIVE: CASE EVENT DATE: 20190805
